FAERS Safety Report 16183623 (Version 1)
Quarter: 2019Q2

REPORT INFORMATION
  Report Type: Spontaneous
  Country: None (occurrence: AU)
  Receive Date: 20190411
  Receipt Date: 20190411
  Transmission Date: 20190711
  Serious: Yes (Life-Threatening, Hospitalization, Other)
  Sender: FDA-Public Use
  Company Number: AU-ORION CORPORATION ORION PHARMA-19_00006018

PATIENT
  Age: 70 Year
  Sex: Female

DRUGS (7)
  1. PREDNISOLONE. [Suspect]
     Active Substance: PREDNISOLONE
     Indication: PSORIATIC ARTHROPATHY
     Route: 065
  2. PREDNISOLONE. [Suspect]
     Active Substance: PREDNISOLONE
     Dosage: LOW DOSE
     Route: 065
  3. HYDROXYCHLOROQUINE [Suspect]
     Active Substance: HYDROXYCHLOROQUINE
     Indication: PRODUCT USED FOR UNKNOWN INDICATION
     Route: 065
  4. RIVAROXABAN [Concomitant]
     Active Substance: RIVAROXABAN
     Indication: CEREBROVASCULAR ACCIDENT PROPHYLAXIS
  5. IMMUNE GLOBULIN NOS [Concomitant]
     Active Substance: IMMUNE GLOBULIN NOS
     Dosage: RECEIVED REGULAR INFUSIONS
     Route: 058
  6. RIVAROXABAN [Concomitant]
     Active Substance: RIVAROXABAN
     Indication: ATRIAL FIBRILLATION
     Route: 065
  7. METHOTREXATE. [Suspect]
     Active Substance: METHOTREXATE
     Indication: PSORIATIC ARTHROPATHY
     Dosage: TWICE WEEKLY
     Route: 048

REACTIONS (11)
  - Dermal sinus [Unknown]
  - Bone abscess [Recovering/Resolving]
  - Calcinosis [Recovering/Resolving]
  - Mycobacterium avium complex infection [Recovering/Resolving]
  - Enterobacter test positive [Recovering/Resolving]
  - Peptostreptococcus test positive [Recovering/Resolving]
  - Immunosuppression [Unknown]
  - Delirium [Recovering/Resolving]
  - Cachexia [Recovering/Resolving]
  - Sepsis [Recovering/Resolving]
  - Bacterial infection [Recovering/Resolving]
